FAERS Safety Report 4763470-5 (Version None)
Quarter: 2005Q3

REPORT INFORMATION
  Report Type: 
  Country: None (occurrence: None)
  Receive Date: 20050826
  Receipt Date: 20050331
  Transmission Date: 20060218
  Serious: Yes (Other)
  Sender: FDA-Public Use
  Company Number: USA-2003-0010607

PATIENT
  Age: 55 Year
  Sex: Female

DRUGS (4)
  1. OXYCONTIN [Suspect]
     Indication: PAIN
     Dosage: 40 MG, TID
  2. PREMARIN [Concomitant]
  3. VOLCONEX [Concomitant]
  4. OXICAL-D [Concomitant]

REACTIONS (13)
  - ANXIETY [None]
  - CONSTIPATION [None]
  - DEPRESSION [None]
  - DISCOMFORT [None]
  - DRUG DEPENDENCE [None]
  - DRUG INEFFECTIVE [None]
  - DRUG TOLERANCE [None]
  - DRUG WITHDRAWAL SYNDROME [None]
  - INSOMNIA [None]
  - MYOFASCIAL PAIN SYNDROME [None]
  - NAUSEA [None]
  - PAIN [None]
  - VOMITING [None]
